FAERS Safety Report 26017643 (Version 1)
Quarter: 2025Q4

REPORT INFORMATION
  Report Type: Spontaneous
  Country: BR (occurrence: BR)
  Receive Date: 20251110
  Receipt Date: 20251110
  Transmission Date: 20260117
  Serious: Yes (Other)
  Sender: CELLTRION
  Company Number: BR-CELLTRION INC.-2025BR040217

PATIENT

DRUGS (3)
  1. INFLIXIMAB [Suspect]
     Active Substance: INFLIXIMAB
     Indication: Crohn^s disease
     Dosage: 4 AMPOULES EVERY 4 WEEKS (ONLY FOUR VIALS WERE USED)
     Route: 042
  2. INFLIXIMAB [Suspect]
     Active Substance: INFLIXIMAB
     Dosage: USED EVERY 8 WEEKS
     Route: 042
  3. INFLIXIMAB [Suspect]
     Active Substance: INFLIXIMAB
     Indication: Crohn^s disease
     Dosage: FIVE VIALS EVERY 4 WEEKS
     Route: 065

REACTIONS (4)
  - Malaise [Unknown]
  - Haemorrhage [Unknown]
  - Therapeutic response shortened [Unknown]
  - Intentional product use issue [Unknown]
